FAERS Safety Report 4376095-0 (Version None)
Quarter: 2004Q2

REPORT INFORMATION
  Report Type: 
  Country: None (occurrence: None)
  Receive Date: 20040611
  Receipt Date: 20040608
  Transmission Date: 20050107
  Serious: Yes (Hospitalization)
  Sender: FDA-Public Use
  Company Number: CA-GLAXOSMITHKLINE-A0514102A

PATIENT
  Age: 32 Year
  Sex: Female

DRUGS (1)
  1. VALTREX [Suspect]
     Dosage: 500MG SEE DOSAGE TEXT
     Route: 048

REACTIONS (2)
  - ABDOMINAL PAIN UPPER [None]
  - BLOOD URINE PRESENT [None]
